FAERS Safety Report 15061788 (Version 9)
Quarter: 2019Q4

REPORT INFORMATION
  Report Type: Report from Study
  Country: JP (occurrence: JP)
  Receive Date: 20180625
  Receipt Date: 20191223
  Transmission Date: 20200122
  Serious: Yes (Hospitalization)
  Sender: FDA-Public Use
  Company Number: JP-ROCHE-2125486

PATIENT
  Age: 48 Year
  Sex: Female
  Weight: 47 kg

DRUGS (147)
  1. SYMPROIC [Concomitant]
     Active Substance: NALDEMEDINE
     Indication: CONSTIPATION
     Route: 065
     Dates: start: 20180223, end: 20180424
  2. HIRUDOID [Concomitant]
     Active Substance: GLYCOSAMINOGLYCANS
     Indication: DRY SKIN
     Route: 065
     Dates: start: 20180312
  3. HIRUDOID [Concomitant]
     Active Substance: GLYCOSAMINOGLYCANS
     Route: 065
     Dates: start: 20190107
  4. LYRICA [Concomitant]
     Active Substance: PREGABALIN
     Route: 065
     Dates: start: 20180517, end: 20180619
  5. XYLOCAINE [Concomitant]
     Active Substance: LIDOCAINE HYDROCHLORIDE
     Indication: GENERAL ANAESTHESIA
     Route: 065
     Dates: start: 20180425, end: 20180426
  6. PHYSIO 140 [Concomitant]
     Active Substance: CALCIUM GLUCONATE\DEXTROSE\MAGNESIUM CHLORIDE\POTASSIUM CHLORIDE\SODIUM ACETATE\SODIUM CHLORIDE\TRISODIUM CITRATE DIHYDRATE
     Route: 065
     Dates: start: 20180907, end: 20180912
  7. BRIDION [Concomitant]
     Active Substance: SUGAMMADEX
     Indication: GENERAL ANAESTHESIA
     Route: 042
     Dates: start: 20180425, end: 20180425
  8. VOLUVEN [HETASTARCH;SODIUM CHLORIDE] [Concomitant]
     Route: 042
     Dates: start: 20180907, end: 20180907
  9. FESIN [SACCHARATED IRON OXIDE] [Concomitant]
     Indication: PROCEDURAL HAEMORRHAGE
     Route: 065
     Dates: start: 20180426, end: 20180507
  10. CLEXANE [Concomitant]
     Active Substance: ENOXAPARIN SODIUM
     Indication: THROMBOSIS PROPHYLAXIS
     Route: 065
     Dates: start: 20180426, end: 20180501
  11. BEPOTASTINE BESILATE [Concomitant]
     Active Substance: BEPOTASTINE BESYLATE
     Indication: SEASONAL ALLERGY
     Route: 065
     Dates: start: 20180416, end: 20180424
  12. EMEND [Concomitant]
     Active Substance: APREPITANT
     Route: 065
     Dates: start: 20180522, end: 20180523
  13. ALOXI [Concomitant]
     Active Substance: PALONOSETRON HYDROCHLORIDE
     Route: 042
     Dates: start: 20180522, end: 20180522
  14. DOMPERIDONE [Concomitant]
     Active Substance: DOMPERIDONE
     Indication: NAUSEA
     Route: 065
     Dates: start: 20180614, end: 20180619
  15. CLOSTRIDIUM BUTYRICUM [Concomitant]
     Active Substance: CLOSTRIDIUM BUTYRICUM SPORES STRAIN M-55
     Indication: DIARRHOEA
     Route: 065
     Dates: start: 20180614, end: 20180619
  16. ANTEBATE [Concomitant]
     Active Substance: BETAMETHASONE DIPROPIONATE
     Indication: DRY SKIN
     Dosage: 0.05 OTHER
     Route: 061
     Dates: start: 20180613
  17. PACLITAXEL. [Suspect]
     Active Substance: PACLITAXEL
     Indication: OVARIAN CANCER
     Dosage: DATE OF MOST RECENT DOSE 259 MG OF PACLITAXEL PRIOR TO SAE (ABDOMINAL PAIN) ONSET 03/APR/2018?ON 22/
     Route: 042
     Dates: start: 20180220
  18. MAGMITT [Concomitant]
     Active Substance: MAGNESIUM OXIDE
     Route: 065
     Dates: start: 20180517, end: 20180619
  19. TALION [BEPOTASTINE BESILATE] [Concomitant]
     Active Substance: BEPOTASTINE BESYLATE
     Indication: SEASONAL ALLERGY
     Route: 065
     Dates: start: 20180219
  20. HYALEIN MINI [Concomitant]
     Active Substance: HYALURONATE SODIUM
     Route: 065
     Dates: start: 20180422
  21. NORITREN [Concomitant]
     Active Substance: NORTRIPTYLINE HYDROCHLORIDE
     Route: 065
     Dates: start: 20180711
  22. ZYPREXA [Concomitant]
     Active Substance: OLANZAPINE
     Indication: NAUSEA
     Route: 065
     Dates: start: 20180405, end: 20180424
  23. ZYPREXA [Concomitant]
     Active Substance: OLANZAPINE
     Route: 065
     Dates: start: 20180521, end: 20180604
  24. REMIFENTANIL [Concomitant]
     Active Substance: REMIFENTANIL
     Route: 042
     Dates: start: 20180425, end: 20180425
  25. PROPOFOL. [Concomitant]
     Active Substance: PROPOFOL
     Route: 065
     Dates: start: 20180907, end: 20180907
  26. DECADRON (DEXAMETHASONE SODIUM PHOSPHATE) [Concomitant]
     Active Substance: DEXAMETHASONE SODIUM PHOSPHATE
     Route: 042
     Dates: start: 20180612, end: 20180612
  27. FLUMARIN [FLOMOXEF SODIUM] [Concomitant]
     Active Substance: FLOMOXEF SODIUM
     Indication: INFECTION PROPHYLAXIS
     Route: 065
     Dates: start: 20180425, end: 20180426
  28. POPSCAINE [Concomitant]
     Active Substance: LEVOBUPIVACAINE HYDROCHLORIDE
     Route: 065
     Dates: start: 20180907, end: 20180907
  29. SOLACET D [Concomitant]
     Route: 065
     Dates: start: 20180522, end: 20180522
  30. DAIKENCHUTO [Concomitant]
     Active Substance: HERBALS
     Route: 065
     Dates: start: 20180507, end: 20180516
  31. GASCON [Concomitant]
     Active Substance: DIMETHICONE
     Route: 065
     Dates: start: 20180517, end: 20180619
  32. SOLACET F [Concomitant]
     Active Substance: CALCIUM CHLORIDE\POTASSIUM CHLORIDE\SODIUM ACETATE\SODIUM CHLORIDE
     Route: 065
     Dates: start: 20180523, end: 20180524
  33. ERYTHROCYTES [Concomitant]
     Active Substance: HUMAN RED BLOOD CELL
     Dosage: IRRADIATED ERYTHROCYTE
     Route: 065
     Dates: start: 20180425, end: 20180425
  34. GRAN [FILGRASTIM] [Concomitant]
     Route: 065
     Dates: start: 20180623, end: 20180625
  35. CALONAL [Concomitant]
     Active Substance: ACETAMINOPHEN
     Indication: PROCEDURAL PAIN
     Route: 065
     Dates: start: 20180517, end: 20180604
  36. LACTEC [Concomitant]
     Active Substance: CALCIUM CHLORIDE ANHYDROUS\POTASSIUM CHLORIDE\SODIUM CHLORIDE\SODIUM LACTATE
     Route: 065
     Dates: start: 20180619
  37. OXYCODONE [Concomitant]
     Active Substance: OXYCODONE
     Indication: TUMOUR PAIN
  38. OXYCODONE [Concomitant]
     Active Substance: OXYCODONE
     Indication: MYALGIA
  39. BLINDED ATEZOLIZUMAB [Suspect]
     Active Substance: ATEZOLIZUMAB
     Indication: OVARIAN CANCER
     Dosage: DATE OF MOST RECENT DOSE OF ATEZOLIZUMAB/PLACEBO PRIOR TO SAE (ABDOMINAL PAIN) ONSET 03/APR/2018?ON
     Route: 042
     Dates: start: 20180220
  40. CRESTOR [Concomitant]
     Active Substance: ROSUVASTATIN CALCIUM
     Indication: HYPERCHOLESTEROLAEMIA
     Route: 065
     Dates: start: 201709, end: 20180425
  41. OXYCONTIN [Concomitant]
     Active Substance: OXYCODONE HYDROCHLORIDE
     Indication: TUMOUR PAIN
     Route: 065
     Dates: start: 20180223, end: 20180424
  42. OXYCONTIN [Concomitant]
     Active Substance: OXYCODONE HYDROCHLORIDE
     Route: 065
     Dates: start: 20180523, end: 20180619
  43. OXINORM [OXYCODONE HYDROCHLORIDE] [Concomitant]
     Active Substance: OXYCODONE HYDROCHLORIDE
     Indication: PROCEDURAL PAIN
     Route: 065
     Dates: start: 20180523, end: 20180619
  44. NORITREN [Concomitant]
     Active Substance: NORTRIPTYLINE HYDROCHLORIDE
     Indication: PERIPHERAL SENSORY NEUROPATHY
     Route: 065
     Dates: start: 20180404, end: 20180424
  45. FENTANYL. [Concomitant]
     Active Substance: FENTANYL
     Route: 065
     Dates: start: 20180425, end: 20180426
  46. ACELIO [Concomitant]
     Active Substance: ACETAMINOPHEN
     Route: 065
     Dates: start: 20180907, end: 20180912
  47. PHYSIO 140 [Concomitant]
     Active Substance: CALCIUM GLUCONATE\DEXTROSE\MAGNESIUM CHLORIDE\POTASSIUM CHLORIDE\SODIUM ACETATE\SODIUM CHLORIDE\TRISODIUM CITRATE DIHYDRATE
     Route: 065
     Dates: start: 20180523, end: 20180523
  48. EPHEDRINE HYDROCHLORIDE [Concomitant]
     Active Substance: EPHEDRINE HYDROCHLORIDE
     Indication: GENERAL ANAESTHESIA
     Route: 065
     Dates: start: 20180425, end: 20180425
  49. OXYGEN. [Concomitant]
     Active Substance: OXYGEN
     Route: 065
     Dates: start: 20180907, end: 20180907
  50. KENEI G [Concomitant]
     Active Substance: GLYCERIN
     Dosage: KENEI G ENEMA 50%
     Route: 065
     Dates: start: 20180425, end: 20180425
  51. OXIFAST [Concomitant]
     Active Substance: OXYCODONE
     Indication: PAIN
     Route: 065
     Dates: start: 20180426, end: 20180506
  52. OXIFAST [Concomitant]
     Active Substance: OXYCODONE
     Indication: PROCEDURAL PAIN
     Route: 065
     Dates: start: 20180516, end: 20180523
  53. EMEND [Concomitant]
     Active Substance: APREPITANT
     Route: 065
     Dates: start: 20180612, end: 20180613
  54. GASTER [FAMOTIDINE] [Concomitant]
     Route: 065
     Dates: start: 20180612, end: 20180612
  55. SERENACE [Concomitant]
     Active Substance: HALOPERIDOL
     Route: 065
     Dates: start: 20180621, end: 20180628
  56. MAXIPIME [Concomitant]
     Active Substance: CEFEPIME HYDROCHLORIDE
     Route: 065
     Dates: start: 20180624, end: 20180630
  57. NICARDIPINE HCL [Concomitant]
     Active Substance: NICARDIPINE HYDROCHLORIDE
     Route: 065
     Dates: start: 20180907, end: 20180907
  58. MAGMITT [Concomitant]
     Active Substance: MAGNESIUM OXIDE
     Route: 065
     Dates: start: 20180507, end: 20180516
  59. OXINORM [OXYCODONE HYDROCHLORIDE] [Concomitant]
     Active Substance: OXYCODONE HYDROCHLORIDE
     Indication: ARTHRALGIA
     Route: 065
     Dates: start: 20180507, end: 20180516
  60. PHYSIO 140 [Concomitant]
     Active Substance: CALCIUM GLUCONATE\DEXTROSE\MAGNESIUM CHLORIDE\POTASSIUM CHLORIDE\SODIUM ACETATE\SODIUM CHLORIDE\TRISODIUM CITRATE DIHYDRATE
     Route: 065
     Dates: start: 20180613, end: 20180613
  61. POPSCAINE [Concomitant]
     Active Substance: LEVOBUPIVACAINE HYDROCHLORIDE
     Route: 065
     Dates: start: 20180425, end: 20180427
  62. PRIMPERAN [Concomitant]
     Active Substance: METOCLOPRAMIDE HYDROCHLORIDE
     Route: 065
     Dates: start: 20180619, end: 20180620
  63. DAIKENCHUTO [Concomitant]
     Active Substance: HERBALS
     Route: 065
     Dates: start: 20180704
  64. ALLEGRA [Concomitant]
     Active Substance: FEXOFENADINE HYDROCHLORIDE
     Indication: RASH MACULO-PAPULAR
     Route: 065
     Dates: start: 20180413, end: 20180415
  65. METHADERM [Concomitant]
     Active Substance: DEXAMETHASONE DIPROPIONATE
     Indication: RASH MACULO-PAPULAR
     Dosage: METHADERM CREAM 0.1%
     Route: 061
     Dates: start: 20180413, end: 20180422
  66. GASTER [FAMOTIDINE] [Concomitant]
     Route: 065
     Dates: start: 20180522, end: 20180522
  67. SOLACET F [Concomitant]
     Active Substance: CALCIUM CHLORIDE\POTASSIUM CHLORIDE\SODIUM ACETATE\SODIUM CHLORIDE
     Route: 065
     Dates: start: 20180516, end: 20180517
  68. RESTAMIN KOWA [Concomitant]
     Route: 065
     Dates: start: 20180522, end: 20180522
  69. RESTAMIN KOWA [Concomitant]
     Route: 065
     Dates: start: 20180612, end: 20180612
  70. SOLU-CORTEF [Concomitant]
     Active Substance: HYDROCORTISONE SODIUM SUCCINATE
     Indication: INFUSION SITE EXTRAVASATION
     Route: 058
     Dates: start: 20180612, end: 20180612
  71. OXYCODONE [Concomitant]
     Active Substance: OXYCODONE
     Indication: PROCEDURAL PAIN
     Route: 065
     Dates: start: 20180920
  72. OXYCONTIN [Concomitant]
     Active Substance: OXYCODONE HYDROCHLORIDE
     Indication: PROCEDURAL PAIN
     Route: 065
     Dates: start: 20180507, end: 20180516
  73. SYMPROIC [Concomitant]
     Active Substance: NALDEMEDINE
     Route: 065
     Dates: start: 20180705
  74. LYRICA [Concomitant]
     Active Substance: PREGABALIN
     Indication: PERIPHERAL SENSORY NEUROPATHY
     Route: 065
     Dates: start: 20180316, end: 20180424
  75. LYRICA [Concomitant]
     Active Substance: PREGABALIN
     Route: 065
     Dates: start: 20180509, end: 20180516
  76. DECADRON (DEXAMETHASONE SODIUM PHOSPHATE) [Concomitant]
     Active Substance: DEXAMETHASONE SODIUM PHOSPHATE
     Indication: PROPHYLAXIS OF NAUSEA AND VOMITING
     Route: 042
     Dates: start: 20180425, end: 20180425
  77. PHENYLEPHRINE HYDROCHLORIDE. [Concomitant]
     Active Substance: PHENYLEPHRINE HYDROCHLORIDE
     Route: 065
     Dates: start: 20180907, end: 20180907
  78. BICANATE [Concomitant]
     Route: 065
     Dates: start: 20180425, end: 20180425
  79. PHYSIO 140 [Concomitant]
     Active Substance: CALCIUM GLUCONATE\DEXTROSE\MAGNESIUM CHLORIDE\POTASSIUM CHLORIDE\SODIUM ACETATE\SODIUM CHLORIDE\TRISODIUM CITRATE DIHYDRATE
     Route: 065
     Dates: start: 20180425, end: 20180428
  80. OXYGEN. [Concomitant]
     Active Substance: OXYGEN
     Indication: GENERAL ANAESTHESIA
     Dosage: LIQUEFIED OXYGEN
     Route: 065
     Dates: start: 20180425, end: 20180430
  81. SOLACET D [Concomitant]
     Route: 065
     Dates: start: 20180506, end: 20180507
  82. SOLACET D [Concomitant]
     Route: 065
     Dates: start: 20180612, end: 20180612
  83. ROPION [Concomitant]
     Active Substance: FLURBIPROFEN AXETIL
     Indication: PAIN
     Route: 042
     Dates: start: 20180426, end: 20180426
  84. KETALAR [Concomitant]
     Active Substance: KETAMINE HYDROCHLORIDE
     Indication: PAIN
     Route: 042
     Dates: start: 20180426, end: 20180502
  85. PRIMPERAN [Concomitant]
     Active Substance: METOCLOPRAMIDE HYDROCHLORIDE
     Indication: NAUSEA
     Route: 065
     Dates: start: 20180427, end: 20180427
  86. PRIMPERAN [Concomitant]
     Active Substance: METOCLOPRAMIDE HYDROCHLORIDE
     Route: 065
     Dates: start: 20180614, end: 20180614
  87. BEPOTASTINE BESILATE [Concomitant]
     Active Substance: BEPOTASTINE BESYLATE
     Route: 065
     Dates: start: 20180507, end: 20180516
  88. ROSUVASTATIN CALCIUM. [Concomitant]
     Active Substance: ROSUVASTATIN CALCIUM
     Indication: HYPERCHOLESTEROLAEMIA
     Route: 065
     Dates: start: 20180507, end: 20180516
  89. SOLACET F [Concomitant]
     Active Substance: CALCIUM CHLORIDE\POTASSIUM CHLORIDE\SODIUM ACETATE\SODIUM CHLORIDE
     Route: 065
     Dates: start: 20180613, end: 20180614
  90. RESTAMIN KOWA [Concomitant]
     Indication: DRY SKIN
     Route: 065
     Dates: start: 201802, end: 20180422
  91. LOXOPROFEN NA [Concomitant]
     Active Substance: LOXOPROFEN SODIUM
     Indication: PAIN
     Route: 065
     Dates: start: 20180623, end: 20180623
  92. DORMICUM [MIDAZOLAM] [Concomitant]
     Active Substance: MIDAZOLAM HYDROCHLORIDE
     Route: 065
     Dates: start: 20180907, end: 20180907
  93. BEVACIZUMAB. [Suspect]
     Active Substance: BEVACIZUMAB
     Indication: OVARIAN CANCER
     Dosage: DATE OF MOST RECENT DOSE 742 MG OF BEVACEZUMAB PRIOR TO SAE (ABDOMINAL PAIN) ONSET 13/MAR/2018?DATE
     Route: 042
     Dates: start: 20180220
  94. CARBOPLATIN. [Suspect]
     Active Substance: CARBOPLATIN
     Indication: OVARIAN CANCER
     Dosage: AREA UNDER THE CURVE (AUC) OF 6 MILLIGRAMS PER MILLILITER*MINUTE (MG/ML*MIN) ON DAY 1 OF EACH 21-DAY
     Route: 042
     Dates: start: 20180220
  95. MAGMITT [Concomitant]
     Active Substance: MAGNESIUM OXIDE
     Route: 065
     Dates: start: 20181029
  96. SYMPROIC [Concomitant]
     Active Substance: NALDEMEDINE
     Route: 065
     Dates: start: 20180523, end: 20180619
  97. SUPRANE [Concomitant]
     Active Substance: DESFLURANE
     Route: 065
     Dates: start: 20180907
  98. DECADRON (DEXAMETHASONE SODIUM PHOSPHATE) [Concomitant]
     Active Substance: DEXAMETHASONE SODIUM PHOSPHATE
     Route: 042
     Dates: start: 20180522, end: 20180522
  99. SOLACET D [Concomitant]
     Route: 065
     Dates: start: 20180425, end: 20180504
  100. DAIKENCHUTO [Concomitant]
     Active Substance: HERBALS
     Indication: ABDOMINAL DISTENSION
     Route: 065
     Dates: start: 20180427, end: 20180516
  101. GASCON [Concomitant]
     Active Substance: DIMETHICONE
     Indication: ABDOMINAL DISTENSION
     Route: 065
     Dates: start: 20180427, end: 20180516
  102. ANTEBATE [Concomitant]
     Active Substance: BETAMETHASONE DIPROPIONATE
     Indication: RASH MACULO-PAPULAR
     Dosage: ANTEBATE LOTION 0.05%
     Route: 061
     Dates: start: 20180413, end: 20180422
  103. SOLACET F [Concomitant]
     Active Substance: CALCIUM CHLORIDE\POTASSIUM CHLORIDE\SODIUM ACETATE\SODIUM CHLORIDE
     Route: 065
     Dates: start: 20180611, end: 20180611
  104. CALONAL [Concomitant]
     Active Substance: ACETAMINOPHEN
     Indication: PAIN
     Route: 065
     Dates: start: 20180507, end: 20180516
  105. DERMOVATE [Concomitant]
     Active Substance: CLOBETASOL
     Indication: INFUSION SITE EXTRAVASATION
     Dosage: 0.05 OTHER
     Route: 061
     Dates: start: 20180612, end: 20180618
  106. RINDERON [BETAMETHASONE] [Concomitant]
     Active Substance: BETAMETHASONE
     Indication: INFUSION SITE EXTRAVASATION
     Route: 058
     Dates: start: 20180613, end: 20180613
  107. ROHYPNOL [Concomitant]
     Active Substance: FLUNITRAZEPAM
     Route: 065
     Dates: start: 20180621, end: 20180625
  108. NORADRENALINE [NOREPINEPHRINE] [Concomitant]
     Active Substance: NOREPINEPHRINE
     Route: 065
     Dates: start: 20180907, end: 20180907
  109. MAGMITT [Concomitant]
     Active Substance: MAGNESIUM OXIDE
     Route: 065
     Dates: start: 201802, end: 20180422
  110. MAGMITT [Concomitant]
     Active Substance: MAGNESIUM OXIDE
     Route: 065
     Dates: start: 20180704
  111. OXINORM [OXYCODONE HYDROCHLORIDE] [Concomitant]
     Active Substance: OXYCODONE HYDROCHLORIDE
     Route: 065
     Dates: start: 20190620
  112. SYMPROIC [Concomitant]
     Active Substance: NALDEMEDINE
     Route: 065
     Dates: start: 20180507, end: 20180516
  113. HIRUDOID [Concomitant]
     Active Substance: GLYCOSAMINOGLYCANS
     Route: 065
     Dates: start: 20180312
  114. NORITREN [Concomitant]
     Active Substance: NORTRIPTYLINE HYDROCHLORIDE
     Route: 065
     Dates: start: 20180922
  115. REMIFENTANIL [Concomitant]
     Active Substance: REMIFENTANIL
     Route: 042
     Dates: start: 20180907, end: 20180907
  116. ESLAX [Concomitant]
     Active Substance: ROCURONIUM BROMIDE
     Route: 065
     Dates: start: 20180907, end: 20180907
  117. XYLOCAINE [Concomitant]
     Active Substance: LIDOCAINE HYDROCHLORIDE
     Indication: PAIN
     Route: 065
     Dates: start: 20180612, end: 20180612
  118. SUPRANE [Concomitant]
     Active Substance: DESFLURANE
     Indication: GENERAL ANAESTHESIA
     Route: 065
     Dates: start: 20180425, end: 20180425
  119. BICANATE [Concomitant]
     Route: 065
     Dates: start: 20180907, end: 20180907
  120. SENNOSIDE [SENNOSIDE A+B] [Concomitant]
     Active Substance: SENNOSIDES A AND B
     Route: 065
     Dates: start: 20180423, end: 20180423
  121. GASCON [Concomitant]
     Active Substance: DIMETHICONE
     Route: 065
     Dates: start: 20180507, end: 20180516
  122. BEPOTASTINE BESILATE [Concomitant]
     Active Substance: BEPOTASTINE BESYLATE
     Route: 065
     Dates: start: 20180517, end: 20180619
  123. ROSUVASTATIN CALCIUM. [Concomitant]
     Active Substance: ROSUVASTATIN CALCIUM
     Route: 065
     Dates: start: 20180517, end: 20180619
  124. ROSUVASTATIN CALCIUM. [Concomitant]
     Active Substance: ROSUVASTATIN CALCIUM
     Route: 065
     Dates: start: 20180711
  125. SOLACET F [Concomitant]
     Active Substance: CALCIUM CHLORIDE\POTASSIUM CHLORIDE\SODIUM ACETATE\SODIUM CHLORIDE
     Route: 065
     Dates: start: 20180522, end: 20180522
  126. GRAN [FILGRASTIM] [Concomitant]
     Indication: NEUTROPHIL COUNT DECREASED
     Dosage: SYRINGE
     Route: 065
     Dates: start: 20180416, end: 20180418
  127. CEFMETAZOLE SODIUM [Concomitant]
     Active Substance: CEFMETAZOLE SODIUM
     Route: 042
     Dates: start: 20180620, end: 20180620
  128. ENALAPRIL MALEATE. [Concomitant]
     Active Substance: ENALAPRIL MALEATE
     Indication: HYPERTENSION
     Route: 065
     Dates: start: 20190528
  129. OXYCONTIN [Concomitant]
     Active Substance: OXYCODONE HYDROCHLORIDE
     Route: 065
     Dates: start: 20180516, end: 20180523
  130. OXYCONTIN [Concomitant]
     Active Substance: OXYCODONE HYDROCHLORIDE
     Route: 065
     Dates: start: 20180711
  131. OXINORM [OXYCODONE HYDROCHLORIDE] [Concomitant]
     Active Substance: OXYCODONE HYDROCHLORIDE
     Indication: TUMOUR PAIN
     Route: 065
     Dates: start: 20180223, end: 20180424
  132. SYMPROIC [Concomitant]
     Active Substance: NALDEMEDINE
     Route: 065
     Dates: start: 20180920
  133. LYRICA [Concomitant]
     Active Substance: PREGABALIN
     Route: 065
     Dates: start: 20180717
  134. FLUTICASONE FUROATE [Concomitant]
     Active Substance: FLUTICASONE FUROATE
     Indication: SEASONAL ALLERGY
     Route: 061
     Dates: start: 20180328, end: 20180422
  135. FENTANYL. [Concomitant]
     Active Substance: FENTANYL
     Route: 065
     Dates: start: 20180907, end: 20180907
  136. PROPOFOL. [Concomitant]
     Active Substance: PROPOFOL
     Route: 065
     Dates: start: 20180425, end: 20180425
  137. ACELIO [Concomitant]
     Active Substance: ACETAMINOPHEN
     Indication: PAIN
     Route: 042
     Dates: start: 20180425, end: 20180504
  138. ESLAX [Concomitant]
     Active Substance: ROCURONIUM BROMIDE
     Route: 065
     Dates: start: 20180425, end: 20180425
  139. DROLEPTAN [Concomitant]
     Active Substance: DROPERIDOL
     Indication: GENERAL ANAESTHESIA
     Route: 065
     Dates: start: 20180425, end: 20180425
  140. PHENYLEPHRINE HYDROCHLORIDE. [Concomitant]
     Active Substance: PHENYLEPHRINE HYDROCHLORIDE
     Indication: GENERAL ANAESTHESIA
     Route: 065
     Dates: start: 20180425, end: 20180425
  141. BRIDION [Concomitant]
     Active Substance: SUGAMMADEX
     Route: 042
     Dates: start: 20180907, end: 20180907
  142. VOLUVEN [HETASTARCH;SODIUM CHLORIDE] [Concomitant]
     Route: 042
     Dates: start: 20180425, end: 20180425
  143. OXIFAST [Concomitant]
     Active Substance: OXYCODONE
     Route: 065
     Dates: start: 20180619
  144. DAIKENCHUTO [Concomitant]
     Active Substance: HERBALS
     Route: 065
     Dates: start: 20180517, end: 20180619
  145. BEPOTASTINE BESILATE [Concomitant]
     Active Substance: BEPOTASTINE BESYLATE
     Route: 065
     Dates: start: 20180711
  146. ROSUVASTATIN CALCIUM. [Concomitant]
     Active Substance: ROSUVASTATIN CALCIUM
     Route: 065
     Dates: start: 20180922
  147. ALOXI [Concomitant]
     Active Substance: PALONOSETRON HYDROCHLORIDE
     Route: 065
     Dates: start: 20180612, end: 20180612

REACTIONS (3)
  - Ileus [Recovered/Resolved]
  - Enterocolitis [Recovered/Resolved]
  - Abdominal pain [Recovered/Resolved]

NARRATIVE: CASE EVENT DATE: 20180515
